FAERS Safety Report 19351162 (Version 1)
Quarter: 2021Q2

REPORT INFORMATION
  Report Type: Spontaneous
  Country: DE (occurrence: DE)
  Receive Date: 20210531
  Receipt Date: 20210531
  Transmission Date: 20210717
  Serious: Yes (Death, Hospitalization)
  Sender: FDA-Public Use
  Company Number: DE-ACCORD-226481

PATIENT
  Age: 83 Year
  Sex: Male

DRUGS (7)
  1. CLOPIDOGREL [Suspect]
     Active Substance: CLOPIDOGREL BISULFATE
     Indication: PRODUCT USED FOR UNKNOWN INDICATION
     Dosage: 75 MG, 1?0?0?0
  2. TELMISARTAN. [Concomitant]
     Active Substance: TELMISARTAN
     Dosage: 80 MG, 0.5?0?0?0
  3. PROSTAGUTT [Concomitant]
     Dosage: 120,160 MG, 1?0?0?0
  4. ATORVASTATIN [Concomitant]
     Active Substance: ATORVASTATIN
     Dosage: 10 MG, 0?0?1?0
  5. ACETYLSALICYLIC ACID [Suspect]
     Active Substance: ASPIRIN
     Indication: PRODUCT USED FOR UNKNOWN INDICATION
     Dosage: 100 MG, 0?1?0?0
  6. TOLTERODINE/TOLTERODINE L?TARTRATE [Concomitant]
     Active Substance: TOLTERODINE TARTRATE
     Dosage: 4 MG, 1?0?0?0
  7. TAMSULOSIN/TAMSULOSIN HYDROCHLORIDE [Concomitant]
     Active Substance: TAMSULOSIN HYDROCHLORIDE
     Dosage: 0.4 MG, 1?0?0?0

REACTIONS (6)
  - Haematochezia [Unknown]
  - Anaemia [Unknown]
  - Dyspnoea exertional [Unknown]
  - Asthenia [Unknown]
  - Dizziness [Unknown]
  - Faecaloma [Unknown]
